FAERS Safety Report 5878164-2 (Version None)
Quarter: 2008Q3

REPORT INFORMATION
  Report Type: 
  Country: None (occurrence: None)
  Receive Date: 20080911
  Receipt Date: 20080905
  Transmission Date: 20090109
  Serious: Yes (Hospitalization)
  Sender: FDA-Public Use
  Company Number: NO-ABBOTT-08P-122-0474775-00

PATIENT
  Age: 47 Year
  Sex: Female

DRUGS (3)
  1. HUMIRA [Suspect]
     Indication: CROHN'S DISEASE
     Dosage: 80 MG INDUCTION
     Route: 058
     Dates: end: 20080301
  2. HUMIRA [Suspect]
     Route: 058
     Dates: start: 20070501, end: 20070501
  3. AZATHIOPRINE [Concomitant]
     Indication: DRUG USE FOR UNKNOWN INDICATION
     Dates: start: 20020101, end: 20080101

REACTIONS (3)
  - MYALGIA [None]
  - MYOSITIS [None]
  - WHEELCHAIR USER [None]
